FAERS Safety Report 16652434 (Version 1)
Quarter: 2019Q3

REPORT INFORMATION
  Report Type: Spontaneous
  Country: US (occurrence: US)
  Receive Date: 20190731
  Receipt Date: 20190731
  Transmission Date: 20191004
  Serious: Yes (Life-Threatening, Hospitalization, Other)
  Sender: FDA-Public Use
  Company Number: None

PATIENT
  Age: 60 Year
  Sex: Male
  Weight: 95.3 kg

DRUGS (2)
  1. FARXIGA [Suspect]
     Active Substance: DAPAGLIFLOZIN PROPANEDIOL
     Indication: DIABETES MELLITUS
     Route: 048
  2. NO DRUG NAME [Concomitant]
     Dates: start: 20130725

REACTIONS (7)
  - Pyrexia [None]
  - Chills [None]
  - Swelling [None]
  - Necrotising soft tissue infection [None]
  - Hip arthroplasty [None]
  - Decubitus ulcer [None]
  - Induration [None]

NARRATIVE: CASE EVENT DATE: 20190729
